FAERS Safety Report 16694269 (Version 1)
Quarter: 2019Q3

REPORT INFORMATION
  Report Type: Spontaneous
  Country: FR (occurrence: FR)
  Receive Date: 20190812
  Receipt Date: 20190812
  Transmission Date: 20191004
  Serious: Yes (Life-Threatening)
  Sender: FDA-Public Use
  Company Number: FR-MYLANLABS-2019M1074600

PATIENT
  Age: 6 Year
  Sex: Female
  Weight: 19.2 kg

DRUGS (3)
  1. IFOSFAMIDE EG [Suspect]
     Active Substance: IFOSFAMIDE
     Indication: NEPHROBLASTOMA
     Dosage: 2400 MILLIGRAM
     Route: 041
     Dates: start: 20180205
  2. ETOPOSIDE MYLAN 20 MG/ML, SOLUTION ? DILUER POUR PERFUSION [Suspect]
     Active Substance: ETOPOSIDE
     Indication: NEPHROBLASTOMA
     Dosage: 80 MILLIGRAM
     Route: 041
     Dates: start: 20180205
  3. CARBOPLATINE [Suspect]
     Active Substance: CARBOPLATIN
     Indication: NEPHROBLASTOMA
     Dosage: 160 MILLIGRAM
     Route: 041
     Dates: start: 20180205

REACTIONS (2)
  - Febrile bone marrow aplasia [Recovered/Resolved]
  - Clostridium difficile colitis [Recovered/Resolved]

NARRATIVE: CASE EVENT DATE: 201802
